FAERS Safety Report 9378874 (Version 1)
Quarter: 2013Q3

REPORT INFORMATION
  Report Type: Spontaneous
  Country: US (occurrence: US)
  Receive Date: 20130702
  Receipt Date: 20130702
  Transmission Date: 20140515
  Serious: No
  Sender: FDA-Public Use
  Company Number: US-PFIZER INC-2013193215

PATIENT
  Sex: Female

DRUGS (2)
  1. SKELAXIN [Suspect]
     Indication: MUSCLE SPASMS
     Dosage: 800 MG, UNK
  2. SKELAXIN [Suspect]
     Indication: MYALGIA

REACTIONS (1)
  - Gastrointestinal tract irritation [Unknown]
